FAERS Safety Report 16071184 (Version 3)
Quarter: 2020Q1

REPORT INFORMATION
  Report Type: Spontaneous
  Country: US (occurrence: US)
  Receive Date: 20190314
  Receipt Date: 20200323
  Transmission Date: 20200409
  Serious: Yes (Other)
  Sender: FDA-Public Use
  Company Number: US-PFIZER INC-2019105608

PATIENT
  Age: 92 Year
  Sex: Female

DRUGS (2)
  1. XELJANZ XR [Suspect]
     Active Substance: TOFACITINIB CITRATE
     Indication: RHEUMATOID ARTHRITIS
     Dosage: 11 MG, 1X/DAY
     Dates: start: 2017
  2. TYLENOL [Concomitant]
     Active Substance: ACETAMINOPHEN
     Indication: BACK PAIN
     Dosage: UNK UNK, AS NEEDED

REACTIONS (3)
  - Fall [Not Recovered/Not Resolved]
  - Gastric ulcer [Unknown]
  - Arthralgia [Not Recovered/Not Resolved]
